FAERS Safety Report 8018390-X (Version None)
Quarter: 2012Q1

REPORT INFORMATION
  Report Type: 
  Country: None (occurrence: None)
  Receive Date: 20120103
  Receipt Date: 20111222
  Transmission Date: 20120608
  Serious: Yes (Hospitalization)
  Sender: FDA-Public Use
  Company Number: US-BAYER-2011-042285

PATIENT
  Age: 37 Year
  Sex: Female
  Weight: 70.295 kg

DRUGS (4)
  1. IBUPROFEN [Concomitant]
     Dosage: 800 MG, UNK
     Dates: start: 20000101
  2. YAZ [Suspect]
     Indication: CONTRACEPTION
     Dosage: UNK
     Dates: start: 20070601, end: 20090901
  3. YASMIN [Suspect]
     Indication: CONTRACEPTION
     Dosage: UNK
     Dates: start: 20030101, end: 20050901
  4. ZYRTEC [Concomitant]
     Dosage: 60 MG, QD
     Dates: start: 20010101

REACTIONS (7)
  - EMOTIONAL DISTRESS [None]
  - ABDOMINAL PAIN [None]
  - MESENTERIC VEIN THROMBOSIS [None]
  - PAIN [None]
  - GASTROINTESTINAL NECROSIS [None]
  - BACK PAIN [None]
  - ANXIETY [None]
